FAERS Safety Report 14689260 (Version 1)
Quarter: 2018Q1

REPORT INFORMATION
  Report Type: Spontaneous
  Country: NL (occurrence: NL)
  Receive Date: 20180328
  Receipt Date: 20180328
  Transmission Date: 20180509
  Serious: Yes (Other)
  Sender: FDA-Public Use
  Company Number: NL-HORIZON-PRE-0134-2018

PATIENT
  Sex: Male

DRUGS (7)
  1. SERETIDE [Suspect]
     Active Substance: FLUTICASONE PROPIONATE\SALMETEROL XINAFOATE
     Indication: ASTHMA
  2. XOLAIR [Suspect]
     Active Substance: OMALIZUMAB
     Indication: ASTHMA
     Dosage: 5 DF 4 TIMES PER WEEK
  3. BUDESONIDE. [Suspect]
     Active Substance: BUDESONIDE
     Indication: ASTHMA
     Dosage: 4 DF; 1 DOSAGE FORM= 1 AMPOULE
  4. ALVESCO [Suspect]
     Active Substance: CICLESONIDE
     Indication: ASTHMA
  5. PREDNISONE. [Suspect]
     Active Substance: PREDNISONE
     Indication: ASTHMA
     Dosage: FROM OCT-2017 TO JAN-2018: 60 MG; FROM JAN-2018: 30 MG
     Dates: start: 201710
  6. ATIMOS [Suspect]
     Active Substance: FORMOTEROL
     Indication: ASTHMA
  7. COMBIVENT [Suspect]
     Active Substance: ALBUTEROL SULFATE\IPRATROPIUM BROMIDE
     Indication: ASTHMA
     Dosage: 2X NEBULIZATION (2)

REACTIONS (2)
  - Therapy change [Unknown]
  - Asthma [Not Recovered/Not Resolved]
